FAERS Safety Report 5318704-5 (Version None)
Quarter: 2007Q2

REPORT INFORMATION
  Report Type: 
  Country: None (occurrence: None)
  Receive Date: 20070503
  Receipt Date: 20070503
  Transmission Date: 20071010
  Serious: No
  Sender: FDA-Public Use
  Company Number: None

PATIENT
  Age: 65 Year
  Sex: Male

DRUGS (2)
  1. AUGMENTIN '125' [Suspect]
     Dates: start: 20060310, end: 20060320
  2. SUDAFED 12 HOUR [Concomitant]

REACTIONS (16)
  - ALANINE AMINOTRANSFERASE INCREASED [None]
  - ALPHA-1 ANTI-TRYPSIN INCREASED [None]
  - ANTINUCLEAR ANTIBODY POSITIVE [None]
  - ASPARTATE AMINOTRANSFERASE INCREASED [None]
  - BLOOD ALKALINE PHOSPHATASE INCREASED [None]
  - BLOOD BILIRUBIN INCREASED [None]
  - CHOLESTASIS [None]
  - CHROMATURIA [None]
  - CONSTIPATION [None]
  - HEPATIC STEATOSIS [None]
  - JAUNDICE [None]
  - LIVER INJURY [None]
  - MALAISE [None]
  - NAUSEA [None]
  - OCULAR ICTERUS [None]
  - PRURITUS [None]
